FAERS Safety Report 8975532 (Version 1)
Quarter: 2012Q4

REPORT INFORMATION
  Report Type: 
  Country: US (occurrence: US)
  Receive Date: 20121219
  Receipt Date: 20121219
  Transmission Date: 20130627
  Serious: No
  Sender: FDA-Public Use
  Company Number: US-PFIZER INC-2012318606

PATIENT
  Sex: Female

DRUGS (1)
  1. DILANTIN [Suspect]
     Dosage: 300 mg, daily at night
     Route: 048

REACTIONS (2)
  - Coordination abnormal [Unknown]
  - Fall [Unknown]
